FAERS Safety Report 4573876-5 (Version None)
Quarter: 2005Q1

REPORT INFORMATION
  Report Type: 
  Country: None (occurrence: None)
  Receive Date: 20050203
  Receipt Date: 20050124
  Transmission Date: 20050727
  Serious: No
  Sender: FDA-Public Use
  Company Number: 2004UW24390

PATIENT
  Age: 47 Year
  Sex: Female
  Weight: 87.9978 kg

DRUGS (11)
  1. CRESTOR [Suspect]
     Dates: start: 20040101
  2. REGLAN [Concomitant]
  3. ZELNORM [Concomitant]
  4. NEXIUM [Concomitant]
  5. NIFEDIPINE [Concomitant]
  6. CHLORDIAZEPOXIDE W/CLIDINIUM BROMIDE [Concomitant]
  7. EFFEXOR [Concomitant]
  8. BENTYL [Concomitant]
  9. PHAZYME [Concomitant]
  10. SYNTHROID [Concomitant]
  11. ESTRATEST [Concomitant]

REACTIONS (1)
  - BLOOD TRIGLYCERIDES INCREASED [None]
